FAERS Safety Report 5907601-X (Version None)
Quarter: 2008Q4

REPORT INFORMATION
  Report Type: 
  Country: None (occurrence: None)
  Receive Date: 20081003
  Receipt Date: 20080925
  Transmission Date: 20090506
  Serious: Yes (Hospitalization, Other)
  Sender: FDA-Public Use
  Company Number: DE-MERCK-0810DEU00003

PATIENT
  Age: 66 Year
  Sex: Male
  Weight: 72 kg

DRUGS (5)
  1. JANUVIA [Suspect]
     Indication: DIABETES MELLITUS
     Route: 048
     Dates: start: 20070622, end: 20080101
  2. PANTOPRAZOLE SODIUM [Concomitant]
     Indication: GASTRITIS
     Route: 048
     Dates: start: 20060608, end: 20070813
  3. PANTOPRAZOLE SODIUM [Concomitant]
     Indication: DYSPEPSIA
     Route: 048
     Dates: start: 20060608, end: 20070813
  4. TAMSULOSIN HYDROCHLORIDE [Concomitant]
     Indication: BENIGN PROSTATIC HYPERPLASIA
     Route: 048
     Dates: start: 20051031
  5. ASCORBIC ACID AND ASPIRIN [Concomitant]
     Route: 048

REACTIONS (3)
  - CORONARY ARTERY DISEASE [None]
  - GOITRE [None]
  - HAEMOPTYSIS [None]
